FAERS Safety Report 23346374 (Version 1)
Quarter: 2023Q4

REPORT INFORMATION
  Report Type: Spontaneous
  Country: US (occurrence: None)
  Receive Date: 20231227
  Receipt Date: 20231227
  Transmission Date: 20240110
  Serious: No
  Sender: FDA-Public Use
  Company Number: None

PATIENT
  Sex: Male

DRUGS (3)
  1. NOVOSEVEN RT [Suspect]
     Active Substance: COAGULATION FACTOR VIIA RECOMBINANT HUMAN
     Indication: Factor VIII deficiency
     Dosage: FREQUENCY : AS NEEDED;?
     Route: 042
     Dates: start: 202305
  2. DUPIXENT [Concomitant]
  3. HEMLIBRA [Concomitant]

REACTIONS (1)
  - Pharyngitis streptococcal [None]
